FAERS Safety Report 5907492-7 (Version None)
Quarter: 2008Q4

REPORT INFORMATION
  Report Type: 
  Country: None (occurrence: None)
  Receive Date: 20081003
  Receipt Date: 20080924
  Transmission Date: 20090506
  Serious: Yes (Death)
  Sender: FDA-Public Use
  Company Number: GB-TEVA-178023ISR

PATIENT
  Age: 63 Year
  Sex: Male
  Weight: 88 kg

DRUGS (2)
  1. CISPLATIN [Suspect]
     Indication: NON-SMALL CELL LUNG CANCER
     Route: 042
     Dates: start: 20051229, end: 20060315
  2. VINORELBINE [Suspect]
     Route: 042
     Dates: start: 20051229, end: 20060315

REACTIONS (3)
  - AORTIC THROMBOSIS [None]
  - CEREBROVASCULAR ACCIDENT [None]
  - LOSS OF CONTROL OF LEGS [None]
